FAERS Safety Report 5234930-8 (Version None)
Quarter: 2007Q1

REPORT INFORMATION
  Report Type: 
  Country: None (occurrence: None)
  Receive Date: 20070209
  Receipt Date: 20070131
  Transmission Date: 20070707
  Serious: Yes (Other)
  Sender: FDA-Public Use
  Company Number: HR-PFIZER INC-2007009128

PATIENT
  Sex: Male
  Weight: 80 kg

DRUGS (4)
  1. ACCUPRO [Suspect]
     Indication: HYPERTENSION
     Route: 048
     Dates: start: 20070112, end: 20070112
  2. NORVASC [Suspect]
     Indication: HYPERTENSION
  3. ATENOLOL [Concomitant]
     Indication: HYPERTENSION
     Route: 048
  4. TERTENSIF [Concomitant]
     Indication: HYPERTENSION
     Route: 048

REACTIONS (1)
  - HYPERTENSIVE CRISIS [None]
